FAERS Safety Report 7075358-8 (Version None)
Quarter: 2010Q4

REPORT INFORMATION
  Report Type: 
  Country: None (occurrence: None)
  Receive Date: 20101030
  Receipt Date: 20100929
  Transmission Date: 20110411
  Serious: No
  Sender: FDA-Public Use
  Company Number: US-WYE-H16848810

PATIENT
  Sex: Male
  Weight: 75.82 kg

DRUGS (2)
  1. PRISTIQ [Suspect]
     Indication: DEPRESSION
     Dosage: UNSPECIFIED
     Route: 048
     Dates: start: 20100727, end: 20100730
  2. PRISTIQ [Suspect]
     Indication: PAIN

REACTIONS (2)
  - DIARRHOEA [None]
  - MEDICATION RESIDUE [None]
